FAERS Safety Report 14636699 (Version 1)
Quarter: 2018Q1

REPORT INFORMATION
  Report Type: Spontaneous
  Country: FR (occurrence: FR)
  Receive Date: 20180314
  Receipt Date: 20180314
  Transmission Date: 20180509
  Serious: Yes (Other)
  Sender: FDA-Public Use
  Company Number: FR-TEVA-2018-FR-867543

PATIENT
  Age: 22 Year
  Sex: Female
  Weight: 59 kg

DRUGS (4)
  1. ETOPOSIDE TEVA [Suspect]
     Active Substance: ETOPOSIDE
     Indication: BONE MARROW TRANSPLANT
     Route: 065
  2. ALKERAN [Suspect]
     Active Substance: MELPHALAN
     Indication: BONE MARROW TRANSPLANT
  3. CYTARABINE SANDOZ [Suspect]
     Active Substance: CYTARABINE
     Indication: BONE MARROW TRANSPLANT
  4. BICNU [Suspect]
     Active Substance: CARMUSTINE
     Indication: BONE MARROW TRANSPLANT

REACTIONS (3)
  - Stomatitis [Recovering/Resolving]
  - Palmar-plantar erythrodysaesthesia syndrome [Recovered/Resolved]
  - Folliculitis [Recovered/Resolved]
